FAERS Safety Report 6170286-4 (Version None)
Quarter: 2009Q2

REPORT INFORMATION
  Report Type: 
  Country: None (occurrence: None)
  Receive Date: 20090428
  Receipt Date: 20090415
  Transmission Date: 20091009
  Serious: Yes (Life-Threatening, Hospitalization, Other)
  Sender: FDA-Public Use
  Company Number: JP-PFIZER INC-2009189342

PATIENT

DRUGS (7)
  1. SUNITINIB MALATE [Suspect]
     Indication: RENAL CELL CARCINOMA
     Dosage: 50 MG, 1X/DAY
     Route: 048
     Dates: start: 20090127
  2. PURSENNID [Concomitant]
     Route: 048
     Dates: start: 20090128, end: 20090203
  3. PRIMPERAN [Concomitant]
     Route: 048
     Dates: start: 20090128
  4. TRIAZOLAM [Concomitant]
     Dosage: UNK
     Route: 048
     Dates: start: 20090128
  5. NAIXAN [Concomitant]
     Route: 048
     Dates: start: 20090130, end: 20090216
  6. FAMOTIDINE [Concomitant]
     Dosage: UNK
     Route: 048
     Dates: start: 20090131
  7. OXYCONTIN [Concomitant]
     Dosage: UNK
     Route: 048
     Dates: start: 20090128

REACTIONS (4)
  - DECREASED APPETITE [None]
  - DIARRHOEA [None]
  - PLATELET COUNT DECREASED [None]
  - PYREXIA [None]
